FAERS Safety Report 10005874 (Version 1)
Quarter: 2014Q1

REPORT INFORMATION
  Report Type: Spontaneous
  Country: DK (occurrence: DK)
  Receive Date: 20140312
  Receipt Date: 20140312
  Transmission Date: 20141002
  Serious: Yes (Other)
  Sender: FDA-Public Use
  Company Number: 2014SP001379

PATIENT
  Age: 54 Year
  Sex: Female

DRUGS (18)
  1. VINORELBINE [Suspect]
     Indication: BREAST CANCER
  2. GEMCITABINE [Suspect]
     Indication: BREAST CANCER
  3. GEMCITABINE [Suspect]
     Indication: BREAST CANCER
     Dates: start: 201206
  4. PACLITAXEL [Suspect]
     Indication: BREAST CANCER
  5. PACLITAXEL [Suspect]
     Indication: BREAST CANCER
  6. DOCETAXEL [Suspect]
     Indication: BREAST CANCER
  7. ZOLEDRONIC ACID [Suspect]
     Indication: BREAST CANCER
  8. ZOLEDRONIC ACID [Suspect]
     Indication: BREAST CANCER
  9. LETROZOLE [Suspect]
     Indication: BREAST CANCER
  10. LETROZOLE [Suspect]
     Indication: BREAST CANCER
  11. CAPECITABINE [Suspect]
     Indication: BREAST CANCER
  12. CAPECITABINE [Suspect]
     Indication: BREAST CANCER
  13. LAPATINIB [Suspect]
     Indication: BREAST CANCER
  14. ERIBULIN [Suspect]
     Indication: BREAST CANCER
  15. HERCEPTIN [Suspect]
     Indication: BREAST CANCER
  16. HERCEPTIN [Suspect]
     Indication: BREAST CANCER
  17. HERCEPTIN [Suspect]
     Indication: BREAST CANCER
     Dates: start: 201206
  18. TAMOXIFEN CITRATE [Suspect]
     Indication: BREAST CANCER

REACTIONS (7)
  - Disease progression [Unknown]
  - Metastases to bone [Unknown]
  - Metastases to liver [Unknown]
  - Nervous system disorder [Unknown]
  - Pleural effusion [Unknown]
  - Lung infiltration [Unknown]
  - Dyspnoea [Unknown]
